FAERS Safety Report 11936863 (Version 1)
Quarter: 2016Q1

REPORT INFORMATION
  Report Type: Spontaneous
  Country: US (occurrence: US)
  Receive Date: 20160121
  Receipt Date: 20160121
  Transmission Date: 20160526
  Serious: No
  Sender: FDA-Public Use
  Company Number: US-TARO-2015TAR00241

PATIENT
  Age: 68 Year
  Sex: Female
  Weight: 95.24 kg

DRUGS (4)
  1. NYSTATIN AND TRIAMCINOLONE ACETONIDE [Suspect]
     Active Substance: NYSTATIN\TRIAMCINOLONE ACETONIDE
     Indication: VULVOVAGINAL MYCOTIC INFECTION
     Dosage: UNK UNK, TWICE
     Route: 061
     Dates: start: 201109, end: 201109
  2. VAGIFEM [Concomitant]
     Active Substance: ESTRADIOL
  3. DIOVAN [Concomitant]
     Active Substance: VALSARTAN
  4. AMBIEN [Concomitant]
     Active Substance: ZOLPIDEM TARTRATE

REACTIONS (2)
  - Application site pain [Recovered/Resolved]
  - Drug administered at inappropriate site [Recovered/Resolved]

NARRATIVE: CASE EVENT DATE: 201109
